FAERS Safety Report 9498958 (Version 1)
Quarter: 2013Q3

REPORT INFORMATION
  Report Type: Spontaneous
  Country: IT (occurrence: IT)
  Receive Date: 20130904
  Receipt Date: 20130904
  Transmission Date: 20140515
  Serious: Yes (Hospitalization)
  Sender: FDA-Public Use
  Company Number: IT-TEVA-429037ISR

PATIENT
  Age: 68 Year
  Sex: Male
  Weight: 59 kg

DRUGS (3)
  1. FLUOROURACILE TEVA [Suspect]
     Indication: COLON CANCER METASTATIC
     Route: 042
     Dates: start: 20130717, end: 20130729
  2. FLUOROURACILE TEVA [Suspect]
     Indication: COLON CANCER METASTATIC
     Route: 042
     Dates: start: 20130717, end: 20130729
  3. OXALIPLATINO KABI [Suspect]
     Indication: COLON CANCER METASTATIC
     Dosage: CONCENTRATE FOR SOLUTION FOR INFUSION
     Route: 042
     Dates: start: 20130717, end: 20130729

REACTIONS (1)
  - Febrile neutropenia [Recovered/Resolved]
